FAERS Safety Report 4548859-1 (Version None)
Quarter: 2004Q4

REPORT INFORMATION
  Report Type: 
  Country: None (occurrence: None)
  Receive Date: 20041227
  Receipt Date: 20041129
  Transmission Date: 20050328
  Serious: No
  Sender: FDA-Public Use
  Company Number: 04P-163-0281554-00

PATIENT
  Age: 48 Year
  Sex: Female
  Weight: 122.4712 kg

DRUGS (3)
  1. HUMIRA [Suspect]
     Indication: RHEUMATOID ARTHRITIS
     Dosage: 40 MG, 1 IN 2 WK, SUBCUTANEOUS
     Route: 058
     Dates: start: 20031101
  2. PREDNISONE [Concomitant]
  3. MELOXICAM [Concomitant]

REACTIONS (5)
  - ASTHMA [None]
  - DIARRHOEA [None]
  - HEADACHE [None]
  - NAUSEA [None]
  - RASH [None]
